FAERS Safety Report 10750611 (Version 1)
Quarter: 2015Q1

REPORT INFORMATION
  Report Type: Spontaneous
  Country: US (occurrence: None)
  Receive Date: 20150128
  Receipt Date: 20150128
  Transmission Date: 20150721
  Serious: Yes (Other)
  Sender: FDA-Public Use
  Company Number: A14-064-A

PATIENT
  Age: 11 Year
  Sex: Female

DRUGS (2)
  1. DF DP HORSE [Suspect]
     Active Substance: DERMATOPHAGOIDES FARINAE\DERMATOPHAGOIDES PTERONYSSINUS
     Indication: IMMUNE TOLERANCE INDUCTION
     Dates: start: 20141001
  2. MOLDS - MOLD MIX 10 [Suspect]
     Active Substance: ALTERNARIA ALTERNATA\ASPERGILLUS BRASILIENSIS\ASPERGILLUS FUMIGATUS\ASPERGILLUS NIDULANS\ASPERGILLUS TERREUS\AUREOBASIDIUM PULLULANS VAR. PULLUTANS\CLADOSPORIUM CLADOSPORIOIDES\CLONOSTACHYS ROSEA F. ROSEA\DENDRYPHIELLA VINOSA\FUSARIUM OXYSPORUM VASINFECTUM\MUCOR RACEMOSUS\PENICILLIUM CHRYSOGENUM VAR
     Indication: IMMUNE TOLERANCE INDUCTION
     Dates: start: 20141001

REACTIONS (3)
  - Sneezing [None]
  - Rhinorrhoea [None]
  - Nasal congestion [None]

NARRATIVE: CASE EVENT DATE: 20141001
